FAERS Safety Report 6038140-6 (Version None)
Quarter: 2009Q1

REPORT INFORMATION
  Report Type: 
  Country: None (occurrence: None)
  Receive Date: 20090113
  Receipt Date: 20090113
  Transmission Date: 20090719
  Serious: No
  Sender: FDA-Public Use
  Company Number: None

PATIENT
  Age: 36 Year
  Sex: Female

DRUGS (1)
  1. LEVOTHYROXINE SODIUM [Suspect]
     Indication: HYPOTHYROIDISM
     Dosage: 100 MCG DAILY PO
     Route: 048
     Dates: start: 20070301, end: 20070901

REACTIONS (2)
  - MOOD ALTERED [None]
  - PRODUCT QUALITY ISSUE [None]
